FAERS Safety Report 8270424-3 (Version None)
Quarter: 2012Q2

REPORT INFORMATION
  Report Type: 
  Country: None (occurrence: None)
  Receive Date: 20120410
  Receipt Date: 20120331
  Transmission Date: 20120825
  Serious: Yes (Hospitalization, Other)
  Sender: FDA-Public Use
  Company Number: PHHY2012EG026200

PATIENT
  Age: 56 Year
  Sex: Male

DRUGS (11)
  1. EXFORGE [Suspect]
     Indication: HYPERTENSION
     Dosage: 1 DF, DAILY
     Route: 048
     Dates: start: 20110602
  2. PLETAL [Concomitant]
  3. SINEMET [Concomitant]
  4. GELAMENT 500/80 [Concomitant]
  5. THIOCTIC ACID [Concomitant]
     Indication: NEURITIS
  6. CURA [Concomitant]
     Indication: LIVER DISORDER
  7. JANUMET [Suspect]
     Indication: DIABETES MELLITUS
  8. GENURIN [Concomitant]
  9. GELAMENT [Concomitant]
  10. GEBNAMET 1000 [Concomitant]
  11. ATORVASTATIN [Concomitant]

REACTIONS (6)
  - CEREBROVASCULAR ACCIDENT [None]
  - PARAESTHESIA [None]
  - EFFUSION [None]
  - PEPTIC ULCER [None]
  - HYPOTONIA [None]
  - BLOOD PRESSURE FLUCTUATION [None]
